FAERS Safety Report 4858746-7 (Version None)
Quarter: 2005Q4

REPORT INFORMATION
  Report Type: 
  Country: None (occurrence: None)
  Receive Date: 20051219
  Receipt Date: 20051025
  Transmission Date: 20060501
  Serious: No
  Sender: FDA-Public Use
  Company Number: US-GLAXOSMITHKLINE-A0579513A

PATIENT
  Age: 29 Year
  Sex: Female

DRUGS (1)
  1. AMERICAN FARE NTS, 21MG STEP 1 [Suspect]
     Dates: start: 20051024

REACTIONS (5)
  - APPLICATION SITE IRRITATION [None]
  - DRUG INEFFECTIVE [None]
  - HEADACHE [None]
  - LOCAL SWELLING [None]
  - NICOTINE DEPENDENCE [None]
